FAERS Safety Report 16710500 (Version 1)
Quarter: 2019Q4

REPORT INFORMATION
  Report Type: Spontaneous
  Country: US (occurrence: US)
  Receive Date: 20190815
  Receipt Date: 20190815
  Transmission Date: 20200122
  Serious: Yes (Other)
  Sender: FDA-Public Use
  Company Number: None

PATIENT
  Age: 29 Year
  Sex: Female

DRUGS (5)
  1. BUTAL/APAP/CAFFEINE 50/325/40MG [Concomitant]
     Dates: start: 20190723
  2. ALPRAZOLAM 0.25MG [Concomitant]
     Active Substance: ALPRAZOLAM
     Dates: start: 20180215
  3. OXYBUTNIN 5MG [Concomitant]
     Dates: start: 20190411
  4. RANITIDINE. [Concomitant]
     Active Substance: RANITIDINE
     Dates: start: 20190411
  5. EMGALITY [Suspect]
     Active Substance: GALCANEZUMAB-GNLM
     Indication: PRODUCT USED FOR UNKNOWN INDICATION
     Dosage: ?          OTHER FREQUENCY:2 INJ FOR 1 DOSE;?
     Route: 058
     Dates: start: 20190726

REACTIONS (5)
  - Swelling face [None]
  - Face oedema [None]
  - Rash [None]
  - Chest pain [None]
  - Drug hypersensitivity [None]

NARRATIVE: CASE EVENT DATE: 20190727
